FAERS Safety Report 5015474-5 (Version None)
Quarter: 2006Q2

REPORT INFORMATION
  Report Type: 
  Country: None (occurrence: None)
  Receive Date: 20060530
  Receipt Date: 20060530
  Transmission Date: 20061013
  Serious: Yes (Other)
  Sender: FDA-Public Use
  Company Number: None

PATIENT
  Age: 43 Year
  Sex: Male
  Weight: 93.4 kg

DRUGS (4)
  1. FLEXERIL [Suspect]
  2. CODEINE 30/ACETAMINOPHEN [Concomitant]
  3. ETODOLAC [Concomitant]
  4. GEMFIBROZIL [Concomitant]

REACTIONS (1)
  - DELIRIUM [None]
